FAERS Safety Report 9881411 (Version 1)
Quarter: 2014Q1

REPORT INFORMATION
  Report Type: Spontaneous
  Country: US (occurrence: US)
  Receive Date: 20140207
  Receipt Date: 20140207
  Transmission Date: 20141002
  Serious: No
  Sender: FDA-Public Use
  Company Number: US-BAXTER-2014BAX002900

PATIENT
  Age: 28 Year
  Sex: Female

DRUGS (2)
  1. GAMMAGARD LIQUID [Suspect]
     Indication: MULTIPLE SCLEROSIS
     Route: 042
     Dates: start: 20130124, end: 201304
  2. GAMMAGARD LIQUID [Suspect]
     Indication: OFF LABEL USE
     Route: 042
     Dates: start: 20140107, end: 20140107

REACTIONS (4)
  - Nausea [Recovering/Resolving]
  - Vomiting [Unknown]
  - Influenza like illness [Recovering/Resolving]
  - Jaundice [Recovering/Resolving]
